FAERS Safety Report 9693090 (Version 4)
Quarter: 2014Q1

REPORT INFORMATION
  Report Type: Spontaneous
  Country: IT (occurrence: IT)
  Receive Date: 20131118
  Receipt Date: 20140217
  Transmission Date: 20141002
  Serious: Yes (Other)
  Sender: FDA-Public Use
  Company Number: IT-ROCHE-1304264

PATIENT
  Age: 73 Year
  Sex: Female
  Weight: 75 kg

DRUGS (13)
  1. AVASTIN [Suspect]
     Indication: ADENOCARCINOMA OF COLON
     Route: 065
     Dates: start: 20130802
  2. RANIDIL [Concomitant]
     Indication: PREMEDICATION
     Route: 042
  3. MEGACORT [Concomitant]
     Indication: PREMEDICATION
     Route: 042
  4. LEVOFOLENE [Concomitant]
     Route: 042
  5. FLUOROURACIL [Concomitant]
     Route: 065
  6. PANTORC [Concomitant]
     Route: 048
  7. LOPERAMIDE [Concomitant]
     Route: 048
  8. AMLODIPIN [Concomitant]
     Route: 048
  9. NORVASC [Concomitant]
     Route: 048
  10. RIOPAN (ITALY) [Concomitant]
  11. HUMALOG [Concomitant]
     Indication: DIABETES MELLITUS
  12. ELOXATIN [Concomitant]
     Route: 042
  13. FOLINIC ACID [Concomitant]

REACTIONS (3)
  - Ageusia [Not Recovered/Not Resolved]
  - Paraesthesia [Unknown]
  - Stomatitis [Not Recovered/Not Resolved]
